FAERS Safety Report 5178485-5 (Version None)
Quarter: 2006Q4

REPORT INFORMATION
  Report Type: 
  Country: None (occurrence: None)
  Receive Date: 20061218
  Receipt Date: 20060818
  Transmission Date: 20070319
  Serious: No
  Sender: FDA-Public Use
  Company Number: US-AMGEN-KDL190465

PATIENT
  Sex: Male

DRUGS (2)
  1. ENBREL [Suspect]
     Indication: RHEUMATOID ARTHRITIS
     Route: 058
     Dates: start: 19980901
  2. METHOTREXATE [Concomitant]
     Dates: start: 19980901

REACTIONS (5)
  - ARTHRALGIA [None]
  - FLATULENCE [None]
  - HICCUPS [None]
  - NASOPHARYNGITIS [None]
  - PNEUMONIA [None]
